FAERS Safety Report 4373194-4 (Version None)
Quarter: 2004Q2

REPORT INFORMATION
  Report Type: 
  Country: None (occurrence: None)
  Receive Date: 20040603
  Receipt Date: 20040514
  Transmission Date: 20050107
  Serious: Yes (Hospitalization, Other)
  Sender: FDA-Public Use
  Company Number: USA040464578

PATIENT
  Age: 75 Year
  Sex: Female
  Weight: 59 kg

DRUGS (8)
  1. FORTEO [Suspect]
     Indication: OSTEOPOROSIS
     Dosage: 20 UG/1 DAY
     Dates: start: 20031104, end: 20040402
  2. CRESTOR (ROSUVASTATIN) [Concomitant]
  3. NEXIUM [Concomitant]
  4. ZELNORM (ZELNORM) [Concomitant]
  5. CALCIUM [Concomitant]
  6. VITAMIN D [Concomitant]
  7. LOPRESSOR [Concomitant]
  8. ACTIGALL [Concomitant]

REACTIONS (2)
  - FALL [None]
  - HIP FRACTURE [None]
